FAERS Safety Report 19960873 (Version 12)
Quarter: 2025Q3

REPORT INFORMATION
  Report Type: Spontaneous
  Country: CA (occurrence: CA)
  Receive Date: 20211016
  Receipt Date: 20250823
  Transmission Date: 20251021
  Serious: Yes (Other)
  Sender: CELLTRION
  Company Number: CA-CELLTRION INC.-2020CA033130

PATIENT

DRUGS (33)
  1. INFLECTRA [Suspect]
     Active Substance: INFLIXIMAB-DYYB
     Indication: Ankylosing spondylitis
     Dates: start: 20201204
  2. INFLECTRA [Suspect]
     Active Substance: INFLIXIMAB-DYYB
     Dates: start: 20201218
  3. INFLECTRA [Suspect]
     Active Substance: INFLIXIMAB-DYYB
     Dates: start: 20210113, end: 20210113
  4. INFLECTRA [Suspect]
     Active Substance: INFLIXIMAB-DYYB
     Dates: start: 20210505, end: 20210505
  5. INFLECTRA [Suspect]
     Active Substance: INFLIXIMAB-DYYB
     Dates: start: 20210825
  6. INFLECTRA [Suspect]
     Active Substance: INFLIXIMAB-DYYB
     Dates: start: 20211006
  7. INFLECTRA [Suspect]
     Active Substance: INFLIXIMAB-DYYB
     Dates: start: 20211109
  8. INFLECTRA [Suspect]
     Active Substance: INFLIXIMAB-DYYB
     Dates: start: 20211119, end: 20211119
  9. INFLECTRA [Suspect]
     Active Substance: INFLIXIMAB-DYYB
     Dates: start: 20220215
  10. INFLECTRA [Suspect]
     Active Substance: INFLIXIMAB-DYYB
     Dates: start: 20220802, end: 20220802
  11. INFLECTRA [Suspect]
     Active Substance: INFLIXIMAB-DYYB
     Dates: start: 20230707
  12. INFLECTRA [Suspect]
     Active Substance: INFLIXIMAB-DYYB
     Dates: start: 20230818
  13. INFLECTRA [Suspect]
     Active Substance: INFLIXIMAB-DYYB
     Dates: start: 20230927, end: 20230927
  14. INFLECTRA [Suspect]
     Active Substance: INFLIXIMAB-DYYB
     Dates: start: 20241009
  15. INFLECTRA [Suspect]
     Active Substance: INFLIXIMAB-DYYB
     Dates: start: 20250109
  16. INFLECTRA [Suspect]
     Active Substance: INFLIXIMAB-DYYB
     Dates: start: 20250414
  17. INFLECTRA [Suspect]
     Active Substance: INFLIXIMAB-DYYB
     Dates: start: 20250526
  18. CALCIUM [Concomitant]
     Active Substance: CALCIUM
  19. LORAZEPAM [Concomitant]
     Active Substance: LORAZEPAM
  20. LORAZEPAM [Concomitant]
     Active Substance: LORAZEPAM
  21. NUVARING [Concomitant]
     Active Substance: ETHINYL ESTRADIOL\ETONOGESTREL
  22. NUVARING [Concomitant]
     Active Substance: ETHINYL ESTRADIOL\ETONOGESTREL
  23. OXITRIPTAN [Concomitant]
     Active Substance: OXITRIPTAN
  24. OXITRIPTAN [Concomitant]
     Active Substance: OXITRIPTAN
  25. OXITRIPTAN [Concomitant]
     Active Substance: OXITRIPTAN
  26. PANTOPRAZOLE [Concomitant]
     Active Substance: PANTOPRAZOLE
  27. PANTOPRAZOLE [Concomitant]
     Active Substance: PANTOPRAZOLE
  28. RAMIPRIL [Concomitant]
     Active Substance: RAMIPRIL
  29. RAMIPRIL [Concomitant]
     Active Substance: RAMIPRIL
  30. SIMVASTATIN [Concomitant]
     Active Substance: SIMVASTATIN
  31. SIMVASTATIN [Concomitant]
     Active Substance: SIMVASTATIN
  32. CHOLECALCIFEROL [Concomitant]
     Active Substance: CHOLECALCIFEROL
  33. CHOLECALCIFEROL [Concomitant]
     Active Substance: CHOLECALCIFEROL

REACTIONS (24)
  - Peripheral nerve transposition [Recovering/Resolving]
  - Bronchitis [Recovered/Resolved]
  - Wound abscess [Recovered/Resolved]
  - Wound infection staphylococcal [Recovered/Resolved]
  - Irritable bowel syndrome [Recovered/Resolved]
  - Discomfort [Unknown]
  - Dizziness [Recovered/Resolved]
  - Loss of therapeutic response [Unknown]
  - Condition aggravated [Unknown]
  - Headache [Recovering/Resolving]
  - Hypotension [Recovered/Resolved]
  - Tinea pedis [Unknown]
  - Onychomycosis [Recovering/Resolving]
  - Swelling [Recovering/Resolving]
  - Tongue disorder [Unknown]
  - Ulcer [Unknown]
  - Lip blister [Unknown]
  - Gingival pain [Unknown]
  - Oropharyngeal discomfort [Unknown]
  - Eating disorder [Unknown]
  - Ageusia [Unknown]
  - Intentional product use issue [Unknown]
  - Off label use [Unknown]
  - Off label use [Unknown]

NARRATIVE: CASE EVENT DATE: 20210101
